FAERS Safety Report 20176359 (Version 1)
Quarter: 2021Q4

REPORT INFORMATION
  Report Type: Spontaneous
  Country: IN (occurrence: IN)
  Receive Date: 20211213
  Receipt Date: 20211213
  Transmission Date: 20220303
  Serious: Yes (Death, Other)
  Sender: FDA-Public Use
  Company Number: IN-PFIZER INC-202100970989

PATIENT
  Age: 60 Year
  Sex: Female

DRUGS (5)
  1. PALBOCICLIB [Suspect]
     Active Substance: PALBOCICLIB
     Indication: Breast cancer metastatic
     Dosage: 125 MG, CYCLIC (21 DAYS ON AND 1 WEEK OFF)
     Route: 048
     Dates: start: 20210518, end: 20210813
  2. PAN L [Concomitant]
     Dosage: 1 DF (1 TABLET), 2X/DAY
  3. ACOTIAMIDE [Concomitant]
     Dosage: 1 DF (1 TABLET), 1X/DAY
  4. LEXICAL [Concomitant]
     Dosage: 1 DF, 1X/DAY
  5. LACTIHEP [BENZOIC ACID;LACTITOL MONOHYDRATE] [Concomitant]
     Dosage: 3 TEASPOONS, 1X/DAY (AT BEDTIME)

REACTIONS (2)
  - Death [Fatal]
  - Product prescribing error [Unknown]

NARRATIVE: CASE EVENT DATE: 20210717
